FAERS Safety Report 6404336-4 (Version None)
Quarter: 2009Q4

REPORT INFORMATION
  Report Type: 
  Country: None (occurrence: None)
  Receive Date: 20091016
  Receipt Date: 20090918
  Transmission Date: 20100525
  Serious: No
  Sender: FDA-Public Use
  Company Number: US-BAYER-200914758BCC

PATIENT
  Age: 78 Year
  Sex: Female
  Weight: 68 kg

DRUGS (7)
  1. ALEVE [Suspect]
     Indication: ARTHRALGIA
     Dosage: TOTAL DAILY DOSE: 440 MG  UNIT DOSE: 220 MG
     Route: 048
     Dates: start: 20090918
  2. BENICAR [Concomitant]
     Route: 065
  3. NORVASC [Concomitant]
     Route: 065
  4. LOVAZA [Concomitant]
     Route: 065
  5. GERITOL [Concomitant]
     Route: 065
  6. TUMS [Concomitant]
     Route: 065
  7. ASPIRIN [Concomitant]
     Route: 065

REACTIONS (1)
  - ARTHRALGIA [None]
